FAERS Safety Report 10260890 (Version 1)
Quarter: 2014Q2

REPORT INFORMATION
  Report Type: Report from Study
  Country: US (occurrence: US)
  Receive Date: 20140626
  Receipt Date: 20140626
  Transmission Date: 20141212
  Serious: Yes (Death, Hospitalization)
  Sender: FDA-Public Use
  Company Number: PHEH2014US012587

PATIENT
  Age: 89 Year
  Sex: Male

DRUGS (1)
  1. SANDOSTATIN LAR [Suspect]
     Indication: CARCINOID SYNDROME
     Dosage: 30 MG, ONCE A MONTH

REACTIONS (5)
  - Death [Fatal]
  - Intestinal perforation [Unknown]
  - Abdominal pain [Unknown]
  - Dysphagia [Unknown]
  - Drug dose omission [Unknown]
